FAERS Safety Report 11327885 (Version 2)
Quarter: 2015Q3

REPORT INFORMATION
  Report Type: Spontaneous
  Country: JP (occurrence: JP)
  Receive Date: 20150731
  Receipt Date: 20150804
  Transmission Date: 20151125
  Serious: Yes (Death, Hospitalization)
  Sender: FDA-Public Use
  Company Number: JP-PFIZER INC-2015256257

PATIENT
  Age: 57 Year
  Sex: Male
  Weight: 61 kg

DRUGS (25)
  1. ELPLAT [Suspect]
     Active Substance: OXALIPLATIN
     Dosage: 140 MG, 1X/DAY
     Route: 041
     Dates: start: 20141015, end: 20141015
  2. LEVOFOLINATE [Suspect]
     Active Substance: LEVOLEUCOVORIN CALCIUM
     Indication: PANCREATIC CARCINOMA
     Dosage: 340 MG, UNK
     Route: 041
     Dates: start: 20140515, end: 20140515
  3. LEVOFOLINATE [Suspect]
     Active Substance: LEVOLEUCOVORIN CALCIUM
     Dosage: 340 MG, 1X/DAY
     Route: 041
     Dates: start: 20140605, end: 20140605
  4. CAMPTO [Suspect]
     Active Substance: IRINOTECAN
     Dosage: 250 MG, 1X/DAY
     Route: 041
     Dates: start: 20140605, end: 20140605
  5. CAMPTO [Suspect]
     Active Substance: IRINOTECAN
     Dosage: 150 MG, 1X/DAY
     Route: 041
     Dates: start: 20141015, end: 20141015
  6. CAMPTO [Suspect]
     Active Substance: IRINOTECAN
     Dosage: 250 MG, 1X/DAY
     Dates: start: 20140717, end: 20140717
  7. ELPLAT [Suspect]
     Active Substance: OXALIPLATIN
     Dosage: 140 MG, 1X/DAY
     Route: 041
     Dates: start: 20140807, end: 20140807
  8. CAMPTO [Suspect]
     Active Substance: IRINOTECAN
     Indication: PANCREATIC CARCINOMA
     Dosage: 250 MG, 1X/DAY
     Route: 041
     Dates: start: 20140515, end: 20140515
  9. CAMPTO [Suspect]
     Active Substance: IRINOTECAN
     Dosage: 150 MG, 1X/DAY
     Route: 041
     Dates: start: 20140918, end: 20140918
  10. ELPLAT [Suspect]
     Active Substance: OXALIPLATIN
     Dosage: 140 MG, 1X/DAY
     Route: 041
     Dates: start: 20140626, end: 20140626
  11. ELPLAT [Suspect]
     Active Substance: OXALIPLATIN
     Dosage: 140 MG, 1X/DAY
     Route: 041
     Dates: start: 20140918, end: 20140918
  12. LEVOFOLINATE [Suspect]
     Active Substance: LEVOLEUCOVORIN CALCIUM
     Dosage: 340 MG, 1X/DAY
     Route: 041
     Dates: start: 20140626, end: 20140626
  13. LEVOFOLINATE [Suspect]
     Active Substance: LEVOLEUCOVORIN CALCIUM
     Dosage: 340 MG, 1X/DAY
     Route: 041
     Dates: start: 20140828, end: 20140828
  14. LEVOFOLINATE [Suspect]
     Active Substance: LEVOLEUCOVORIN CALCIUM
     Dosage: 340 MG, 1X/DAY
     Route: 041
     Dates: start: 20141015, end: 20141015
  15. CAMPTO [Suspect]
     Active Substance: IRINOTECAN
     Dosage: 250 MG, 1X/DAY
     Route: 041
     Dates: start: 20140626, end: 20140626
  16. CAMPTO [Suspect]
     Active Substance: IRINOTECAN
     Dosage: 200 MG, 1X/DAY
     Route: 041
     Dates: start: 20140828, end: 20140828
  17. ELPLAT [Suspect]
     Active Substance: OXALIPLATIN
     Indication: PANCREATIC CARCINOMA
     Dosage: 140 MG, 1X/DAY
     Route: 041
     Dates: start: 20140515, end: 20140515
  18. ELPLAT [Suspect]
     Active Substance: OXALIPLATIN
     Dosage: 140 MG, 1X/DAY
     Route: 041
     Dates: start: 20140717, end: 20140717
  19. 5-FU [Concomitant]
     Active Substance: FLUOROURACIL
     Dosage: 2394 MG/M2, UNK (4120 MG/BODY/D1-2)
     Dates: start: 20140515, end: 20141015
  20. CAMPTO [Suspect]
     Active Substance: IRINOTECAN
     Dosage: 200 MG, 1X/DAY
     Route: 041
     Dates: start: 20140807, end: 20140807
  21. ELPLAT [Suspect]
     Active Substance: OXALIPLATIN
     Dosage: 140 MG, 1X/DAY
     Route: 041
     Dates: start: 20140605, end: 20140605
  22. LEVOFOLINATE [Suspect]
     Active Substance: LEVOLEUCOVORIN CALCIUM
     Dosage: 340 MG, 1X/DAY
     Route: 041
     Dates: start: 20140717, end: 20140717
  23. LEVOFOLINATE [Suspect]
     Active Substance: LEVOLEUCOVORIN CALCIUM
     Dosage: 340 MG, 1X/DAY
     Route: 041
     Dates: start: 20140807, end: 20140807
  24. LEVOFOLINATE [Suspect]
     Active Substance: LEVOLEUCOVORIN CALCIUM
     Dosage: 340 MG, 1X/DAY
     Route: 041
     Dates: start: 20140918, end: 20140918
  25. ELPLAT [Suspect]
     Active Substance: OXALIPLATIN
     Dosage: 110 MG, 1X/DAY
     Route: 041
     Dates: start: 20140828, end: 20140828

REACTIONS (13)
  - White blood cell count decreased [Unknown]
  - Blood bilirubin increased [Unknown]
  - Bile duct stenosis [Unknown]
  - Neutrophil count decreased [Unknown]
  - Diarrhoea [Unknown]
  - Aspartate aminotransferase increased [Unknown]
  - Decreased appetite [Unknown]
  - Haemorrhage [Fatal]
  - Nausea [Unknown]
  - Fatigue [Unknown]
  - Stomatitis [Unknown]
  - Peripheral sensory neuropathy [Unknown]
  - Alanine aminotransferase increased [Unknown]

NARRATIVE: CASE EVENT DATE: 20140529
